FAERS Safety Report 23195375 (Version 1)
Quarter: 2023Q4

REPORT INFORMATION
  Report Type: Spontaneous
  Country: US (occurrence: US)
  Receive Date: 20231117
  Receipt Date: 20231117
  Transmission Date: 20240109
  Serious: Yes (Other)
  Sender: FDA-Public Use
  Company Number: US-ADC THERAPEUTICS SA-ADC-2023-000461

PATIENT
  Sex: Male

DRUGS (8)
  1. ZYNLONTA [Suspect]
     Active Substance: LONCASTUXIMAB TESIRINE-LPYL
     Indication: Diffuse large B-cell lymphoma
     Dosage: FULL DOSE
     Route: 042
     Dates: start: 20230331, end: 20230331
  2. ZYNLONTA [Suspect]
     Active Substance: LONCASTUXIMAB TESIRINE-LPYL
     Dosage: HALF DOSE
     Route: 042
     Dates: start: 20230421, end: 20230421
  3. ZYNLONTA [Suspect]
     Active Substance: LONCASTUXIMAB TESIRINE-LPYL
     Dosage: HALF DOSE
     Route: 042
     Dates: start: 20230512, end: 20230512
  4. ZYNLONTA [Suspect]
     Active Substance: LONCASTUXIMAB TESIRINE-LPYL
     Dosage: HALF DOSE
     Route: 042
     Dates: start: 20230602, end: 20230602
  5. ZYNLONTA [Suspect]
     Active Substance: LONCASTUXIMAB TESIRINE-LPYL
     Dosage: HALF DOSE
     Route: 042
     Dates: start: 20230623, end: 20230623
  6. ZYNLONTA [Suspect]
     Active Substance: LONCASTUXIMAB TESIRINE-LPYL
     Dosage: HALF DOSE
     Route: 042
     Dates: start: 20230714, end: 20230714
  7. LISINOPRIL [Concomitant]
     Active Substance: LISINOPRIL
     Indication: Blood pressure abnormal
     Dosage: 10 MILLIGRAM
     Dates: end: 20230814
  8. METOPROLOL [Concomitant]
     Active Substance: METOPROLOL
     Indication: Blood pressure normal
     Dosage: 12.5 MILLIGRAM

REACTIONS (12)
  - Pericardial effusion [Not Recovered/Not Resolved]
  - Oedema [Recovering/Resolving]
  - Pleural effusion [Not Recovered/Not Resolved]
  - Abnormal weight gain [Recovering/Resolving]
  - Pleurisy [Not Recovered/Not Resolved]
  - Blister [Recovered/Resolved]
  - Pruritus [Not Recovered/Not Resolved]
  - Peripheral swelling [Not Recovered/Not Resolved]
  - Hypervolaemia [Not Recovered/Not Resolved]
  - Dyspnoea [Recovering/Resolving]
  - Fatigue [Not Recovered/Not Resolved]
  - Scrotal swelling [Recovered/Resolved]

NARRATIVE: CASE EVENT DATE: 20230101
